FAERS Safety Report 13536693 (Version 1)
Quarter: 2017Q2

REPORT INFORMATION
  Report Type: Report from Study
  Country: US (occurrence: US)
  Receive Date: 20170511
  Receipt Date: 20170511
  Transmission Date: 20170830
  Serious: No
  Sender: FDA-Public Use
  Company Number: GXBR2017US001576

PATIENT
  Age: 47 Year
  Sex: Male
  Weight: 102 kg

DRUGS (1)
  1. GLATOPA [Suspect]
     Active Substance: GLATIRAMER ACETATE
     Indication: MULTIPLE SCLEROSIS
     Dosage: 20 MG, UNK
     Route: 058
     Dates: start: 20170225

REACTIONS (4)
  - Fatigue [Not Recovered/Not Resolved]
  - Hemianaesthesia [Not Recovered/Not Resolved]
  - Injection site pain [Recovered/Resolved]
  - Injection site erythema [Recovered/Resolved]

NARRATIVE: CASE EVENT DATE: 20170427
